FAERS Safety Report 4732103-6 (Version None)
Quarter: 2005Q3

REPORT INFORMATION
  Report Type: 
  Country: None (occurrence: None)
  Receive Date: 20050725
  Receipt Date: 20010607
  Transmission Date: 20060218
  Serious: Yes (Hospitalization)
  Sender: FDA-Public Use
  Company Number: 2012629

PATIENT
  Age: 25 Year
  Sex: Female

DRUGS (2)
  1. MORPHINE SULFATE [Suspect]
  2. BENZODIAZEPINE [Suspect]

REACTIONS (1)
  - CONVULSION [None]
